FAERS Safety Report 8087991-5 (Version None)
Quarter: 2012Q1

REPORT INFORMATION
  Report Type: 
  Country: None (occurrence: None)
  Receive Date: 20120131
  Receipt Date: 20120118
  Transmission Date: 20120608
  Serious: Yes (Other)
  Sender: FDA-Public Use
  Company Number: BR-AMGEN-BRASP2012004865

PATIENT
  Age: 47 Year
  Sex: Male
  Weight: 95 kg

DRUGS (6)
  1. PREDNISONE TAB [Concomitant]
     Dosage: UNK UNK, UNK
  2. RANITIDINE [Concomitant]
     Dosage: UNK UNK, UNK
  3. ENBREL [Suspect]
     Indication: RHEUMATOID ARTHRITIS
     Dosage: 50 MG, WEEKLY
     Route: 058
  4. DICLOFENAC [Concomitant]
     Dosage: UNK UNK, UNK
  5. FOLIC ACID [Concomitant]
     Dosage: UNK UNK, UNK
  6. METHOTREXATE [Concomitant]
     Dosage: UNK UNK, UNK

REACTIONS (1)
  - ULCERATIVE KERATITIS [None]
